FAERS Safety Report 9154091 (Version 4)
Quarter: 2013Q2

REPORT INFORMATION
  Report Type: Report from Study
  Country: US (occurrence: US)
  Receive Date: 20130311
  Receipt Date: 20130422
  Transmission Date: 20140414
  Serious: Yes (Death, Hospitalization)
  Sender: FDA-Public Use
  Company Number: US-BRISTOL-MYERS SQUIBB COMPANY-17443086

PATIENT
  Age: 41 Year
  Sex: Female

DRUGS (15)
  1. CISPLATIN [Suspect]
     Indication: METASTATIC GASTRIC CANCER
     Dosage: 28SEP12-21DEC12:103MG(1/28/DAYS)?18JAN13-ONG:83MG 1/28DAYS?BATCH:11G0045,1160045,12080579,1211077
     Route: 042
     Dates: start: 20120928, end: 20130222
  2. TEGAFUR + GIMERACIL + OTERACIL POTASSIUM [Suspect]
     Indication: METASTATIC GASTRIC CANCER
     Dosage: 35MG FROM 28-SEP12-10JAN13?DECREASED TO 30MG ON18JAN13-07FEB13
     Route: 048
     Dates: start: 20120928, end: 20130222
  3. OMEPRAZOLE [Concomitant]
     Indication: ABDOMINAL PAIN UPPER
     Dates: start: 201208
  4. TYLEX [Concomitant]
     Indication: ABDOMINAL PAIN
     Dates: start: 20130111, end: 20130214
  5. MORPHINE [Concomitant]
     Indication: ABDOMINAL PAIN
     Dates: start: 20130215
  6. LACTULOSE [Concomitant]
     Indication: CONSTIPATION
     Dates: start: 20130222, end: 20130228
  7. METOCLOPRAMIDE [Concomitant]
     Indication: VOMITING
     Dates: start: 20130222
  8. DIPYRONE [Concomitant]
     Indication: PAIN PROPHYLAXIS
     Dates: start: 20130222
  9. DIPYRONE [Concomitant]
     Indication: PROPHYLAXIS
     Dates: start: 20130222
  10. HEPARIN [Concomitant]
     Indication: THROMBOSIS PROPHYLAXIS
     Dates: start: 20130222, end: 20130228
  11. ONDANSETRON [Concomitant]
     Indication: VOMITING
     Dates: start: 20130222, end: 20130228
  12. ALLOPURINOL [Concomitant]
     Indication: PROPHYLAXIS
     Dates: start: 20130225, end: 20130228
  13. DEXCHLORPHENIRAMINE [Concomitant]
     Indication: ALLERGY PROPHYLAXIS
     Dates: start: 20130226, end: 20130228
  14. RANITIDINE [Concomitant]
     Indication: ALLERGY PROPHYLAXIS
     Dates: start: 20130226, end: 20130228
  15. MIDAZOLAM [Concomitant]
     Indication: PROPHYLAXIS
     Dates: start: 20130301, end: 20130302

REACTIONS (3)
  - Malignant neoplasm progression [Fatal]
  - Renal failure acute [Fatal]
  - Hyperkalaemia [Not Recovered/Not Resolved]
